FAERS Safety Report 5809634-0 (Version None)
Quarter: 2008Q3

REPORT INFORMATION
  Report Type: 
  Country: None (occurrence: None)
  Receive Date: 20080709
  Receipt Date: 20080630
  Transmission Date: 20090109
  Serious: Yes (Death)
  Sender: FDA-Public Use
  Company Number: 2008-02318

PATIENT
  Age: 46 Year
  Sex: Male
  Weight: 76 kg

DRUGS (9)
  1. VELCADE [Suspect]
     Indication: MULTIPLE MYELOMA
     Dosage: 2.4 MG,  INTRAVENOUS
     Route: 042
     Dates: start: 20070123, end: 20070220
  2. DICLOFENAC SODIUM [Concomitant]
  3. GASTROM (ECABET MONOSODIUM) [Concomitant]
  4. PURSENNID (SENNA LEAF) [Concomitant]
  5. URSO 250 [Concomitant]
  6. METHYCOBAL (MECOBALAMIN) [Concomitant]
  7. CALONAL (PARACETAMOL) [Concomitant]
  8. FLOMOX (CEFCAPENE PIVOXIL HYDROCHLORIDE) [Concomitant]
  9. FUROSEMIDE [Concomitant]

REACTIONS (1)
  - DISEASE PROGRESSION [None]
